FAERS Safety Report 12317539 (Version 5)
Quarter: 2018Q4

REPORT INFORMATION
  Report Type: Report from Study
  Country: AT (occurrence: AT)
  Receive Date: 20160429
  Receipt Date: 20181217
  Transmission Date: 20190204
  Serious: Yes (Disabling)
  Sender: FDA-Public Use
  Company Number: AT-ROCHE-1749561

PATIENT
  Age: 77 Year
  Sex: Male

DRUGS (2)
  1. VISMODEGIB. [Suspect]
     Active Substance: VISMODEGIB
     Indication: BASAL CELL CARCINOMA
     Route: 048
     Dates: start: 201507, end: 201509
  2. VISMODEGIB. [Suspect]
     Active Substance: VISMODEGIB
     Dosage: DOSE REDUCTION DUE TO MUSCLE CRAMPS
     Route: 048
     Dates: start: 201509, end: 201603

REACTIONS (4)
  - Squamous cell carcinoma [Not Recovered/Not Resolved]
  - Metastatic squamous cell carcinoma [Not Recovered/Not Resolved]
  - Paraplegia [Not Recovered/Not Resolved]
  - Muscle spasms [Unknown]

NARRATIVE: CASE EVENT DATE: 201509
